FAERS Safety Report 15305878 (Version 1)
Quarter: 2018Q3

REPORT INFORMATION
  Report Type: Spontaneous
  Country: US (occurrence: US)
  Receive Date: 20180810
  Receipt Date: 20180810
  Transmission Date: 20181010
  Serious: No
  Sender: FDA-Public Use
  Company Number: None

PATIENT
  Age: 72 Year
  Sex: Female

DRUGS (1)
  1. ATORVASTATIN, 40 MG [Suspect]
     Active Substance: ATORVASTATIN
     Route: 048
     Dates: start: 20180706, end: 20180706

REACTIONS (2)
  - Gingival bleeding [None]
  - Product substitution issue [None]

NARRATIVE: CASE EVENT DATE: 20180706
